FAERS Safety Report 7835653-9 (Version None)
Quarter: 2011Q4

REPORT INFORMATION
  Report Type: 
  Country: None (occurrence: None)
  Receive Date: 20111024
  Receipt Date: 20111017
  Transmission Date: 20120403
  Serious: No
  Sender: FDA-Public Use
  Company Number: US-B.I. PHARMACEUTICALS,INC./RIDGEFIELD-2011-BP-12974BP

PATIENT
  Age: 65 Year
  Sex: Female

DRUGS (9)
  1. SOTALOL HCL [Concomitant]
     Indication: ARRHYTHMIA
     Dosage: 240 MG
     Route: 048
     Dates: start: 20110301
  2. SOTALOL HCL [Concomitant]
     Indication: ATRIAL FIBRILLATION
  3. TRAMADOL HCL [Concomitant]
  4. POTASSIUM [Concomitant]
     Indication: BLOOD POTASSIUM DECREASED
     Dosage: 80 MEQ
     Route: 048
     Dates: start: 20090901
  5. BUMEX [Concomitant]
     Indication: FLUID RETENTION
  6. BUMEX [Concomitant]
     Indication: DIURETIC THERAPY
     Dosage: 3 MG
     Route: 048
     Dates: start: 20090901
  7. METOLAZONE [Concomitant]
     Indication: FLUID RETENTION
  8. PRADAXA [Suspect]
     Indication: ATRIAL FIBRILLATION
     Dosage: 300 MG
     Route: 048
  9. METOLAZONE [Concomitant]
     Indication: DIURETIC THERAPY
     Route: 048
     Dates: start: 20100901

REACTIONS (3)
  - PAIN IN JAW [None]
  - INSOMNIA [None]
  - CARDIAC FLUTTER [None]
